FAERS Safety Report 19239260 (Version 1)
Quarter: 2021Q2

REPORT INFORMATION
  Report Type: Report from Study
  Country: None (occurrence: DO)
  Receive Date: 20210511
  Receipt Date: 20210511
  Transmission Date: 20210717
  Serious: Yes (Hospitalization, Other)
  Sender: FDA-Public Use
  Company Number: DO-ABBVIE-21K-279-3896705-00

PATIENT
  Age: 21 Year
  Sex: Male
  Weight: 43 kg

DRUGS (1)
  1. HUMIRA [Suspect]
     Active Substance: ADALIMUMAB
     Indication: CROHN^S DISEASE
     Route: 058
     Dates: start: 20210310, end: 20210420

REACTIONS (3)
  - Gastrointestinal disorder [Recovering/Resolving]
  - Crohn^s disease [Unknown]
  - Intestinal obstruction [Recovering/Resolving]

NARRATIVE: CASE EVENT DATE: 2021
